FAERS Safety Report 20091597 (Version 3)
Quarter: 2021Q4

REPORT INFORMATION
  Report Type: Spontaneous
  Country: BR (occurrence: BR)
  Receive Date: 20211119
  Receipt Date: 20211217
  Transmission Date: 20220304
  Serious: Yes (Other)
  Sender: FDA-Public Use
  Company Number: BR-NOVARTISPH-NVSC2021BR263601

PATIENT
  Age: 44 Year
  Sex: Male

DRUGS (2)
  1. MAXIDEX [Suspect]
     Active Substance: DEXAMETHASONE
     Indication: Ocular hyperaemia
     Dosage: 1 DRP (VIAL WITH 5 ML)
     Route: 047
     Dates: start: 202108, end: 202109
  2. MAXIDEX [Suspect]
     Active Substance: DEXAMETHASONE
     Indication: Eye irritation

REACTIONS (3)
  - Cataract [Not Recovered/Not Resolved]
  - Blindness [Not Recovered/Not Resolved]
  - Glaucoma [Not Recovered/Not Resolved]

NARRATIVE: CASE EVENT DATE: 20210801
